FAERS Safety Report 21343715 (Version 13)
Quarter: 2025Q1

REPORT INFORMATION
  Report Type: Report from Study
  Country: US (occurrence: US)
  Receive Date: 20220916
  Receipt Date: 20250321
  Transmission Date: 20250409
  Serious: Yes (Hospitalization, Other)
  Sender: TAKEDA
  Company Number: US-TAKEDA-US202027454

PATIENT
  Age: 74 Year
  Sex: Female

DRUGS (3)
  1. HUMAN IMMUNOGLOBULIN G\HYALURONIDASE RECOMBINANT HUMAN [Suspect]
     Active Substance: HUMAN IMMUNOGLOBULIN G\HYALURONIDASE (HUMAN RECOMBINANT)
     Indication: Primary immunodeficiency syndrome
  2. HUMAN IMMUNOGLOBULIN G\HYALURONIDASE RECOMBINANT HUMAN [Suspect]
     Active Substance: HUMAN IMMUNOGLOBULIN G\HYALURONIDASE (HUMAN RECOMBINANT)
     Indication: Immunodeficiency common variable
  3. COVID-19 VACCINE NOS [Suspect]
     Active Substance: COVID-19 VACCINE
     Indication: COVID-19 immunisation

REACTIONS (30)
  - Sinusitis [Unknown]
  - Skin laceration [Unknown]
  - Limb injury [Unknown]
  - Foot fracture [Unknown]
  - Systemic lupus erythematosus [Unknown]
  - Autoimmune disorder [Unknown]
  - Obstruction [Unknown]
  - Immunisation reaction [Unknown]
  - Infusion related reaction [Recovering/Resolving]
  - Skin induration [Unknown]
  - Viral infection [Unknown]
  - Gastroenteritis viral [Unknown]
  - Somnolence [Unknown]
  - Peripheral swelling [Unknown]
  - Arthropod sting [Unknown]
  - Herpes zoster [Unknown]
  - Road traffic accident [Unknown]
  - Ligament sprain [Unknown]
  - Bone contusion [Unknown]
  - Wound [Unknown]
  - Asthma [Unknown]
  - Oropharyngeal pain [Unknown]
  - Dyspepsia [Unknown]
  - Nasal congestion [Unknown]
  - Abdominal pain [Unknown]
  - Rash [Unknown]
  - Pain in extremity [Unknown]
  - Infusion site pain [Unknown]
  - Pyrexia [Unknown]
  - Fatigue [Unknown]

NARRATIVE: CASE EVENT DATE: 20240605
